FAERS Safety Report 5206757-4 (Version None)
Quarter: 2007Q1

REPORT INFORMATION
  Report Type: 
  Country: None (occurrence: None)
  Receive Date: 20070108
  Receipt Date: 20070104
  Transmission Date: 20070707
  Serious: Yes (Other)
  Sender: FDA-Public Use
  Company Number: DEWYE028804JAN07

PATIENT
  Sex: Female

DRUGS (1)
  1. VENLAFAXINE HCL [Suspect]
     Dosage: 75 + 37.5MG (FREQUENCY UNKNOWN) ORAL - SEE IMAGE
     Route: 048
     Dates: start: 20050101

REACTIONS (1)
  - DRUG DEPENDENCE [None]
